FAERS Safety Report 8319346-X (Version None)
Quarter: 2012Q2

REPORT INFORMATION
  Report Type: 
  Country: None (occurrence: None)
  Receive Date: 20120427
  Receipt Date: 20120419
  Transmission Date: 20120825
  Serious: Yes (Hospitalization, Other)
  Sender: FDA-Public Use
  Company Number: CA-BRISTOL-MYERS SQUIBB COMPANY-15195506

PATIENT
  Age: 58 Year
  Sex: Female

DRUGS (19)
  1. NPH INSULIN [Concomitant]
     Dosage: INSULIN
  2. VIOKASE 16 [Concomitant]
  3. IRON [Concomitant]
     Dosage: ALSO 300MG,BID.
  4. HUMIRA [Concomitant]
  5. ADALAT [Concomitant]
  6. PREZISTA [Concomitant]
  7. TYLENOL [Concomitant]
  8. ALTACE [Concomitant]
  9. PERCOCET [Concomitant]
  10. RABEPRAZOLE SODIUM [Concomitant]
  11. BISOPROLOL FUMARATE [Concomitant]
  12. VITAMIN B-12 [Concomitant]
     Dosage: INJECTION
  13. IBUPROFEN [Concomitant]
  14. PANTOPRAZOLE SODIUM [Concomitant]
  15. ARAVA [Concomitant]
  16. FLEXERIL [Concomitant]
  17. ORENCIA [Suspect]
     Indication: RHEUMATOID ARTHRITIS
     Dosage: NO OF INFUSIONS:3 INTP:JULY10 RESTARTED:21DEC11 LAST INF:9JAN12,28MAR12
     Route: 042
     Dates: start: 20100708
  18. VITAMIN D [Concomitant]
  19. PREDNISONE [Concomitant]

REACTIONS (9)
  - NAUSEA [None]
  - DIARRHOEA [None]
  - ASTHENIA [None]
  - DEHYDRATION [None]
  - LOCALISED INFECTION [None]
  - PARALYSIS [None]
  - CYSTITIS [None]
  - RHEUMATOID ARTHRITIS [None]
  - KIDNEY INFECTION [None]
